FAERS Safety Report 20061205 (Version 4)
Quarter: 2022Q3

REPORT INFORMATION
  Report Type: Other
  Country: GB (occurrence: GB)
  Receive Date: 20211112
  Receipt Date: 20220714
  Transmission Date: 20221027
  Serious: Yes (Life-Threatening, Other)
  Sender: FDA-Public Use
  Company Number: GB-LDELTA-NLLD0033076

PATIENT

DRUGS (5)
  1. CHLORAMBUCIL [Suspect]
     Active Substance: CHLORAMBUCIL
     Indication: Marginal zone lymphoma recurrent
     Dosage: UNK
     Route: 065
     Dates: start: 202105, end: 20211008
  2. CLOZAPINE [Suspect]
     Active Substance: CLOZAPINE
     Indication: Schizophrenia
     Dosage: 300 MG
     Route: 048
     Dates: start: 20070511, end: 20191018
  3. CLOZAPINE [Suspect]
     Active Substance: CLOZAPINE
     Dosage: 300 MG, QD
     Route: 048
     Dates: start: 20191211
  4. CLOZAPINE [Suspect]
     Active Substance: CLOZAPINE
     Dosage: UNK
     Route: 048
     Dates: start: 20050211, end: 20051215
  5. CLOZAPINE [Suspect]
     Active Substance: CLOZAPINE
     Dosage: UNK
     Route: 048
     Dates: start: 20191030, end: 20191125

REACTIONS (9)
  - Drug monitoring procedure incorrectly performed [Unknown]
  - Contraindicated product administered [Unknown]
  - Neutropenia [Recovered/Resolved]
  - Lymphoma [Not Recovered/Not Resolved]
  - Agranulocytosis [Recovered/Resolved]
  - Neutrophil count decreased [Recovered/Resolved]
  - Platelet count decreased [Not Recovered/Not Resolved]
  - Eosinophilia [Unknown]
  - Marginal zone lymphoma refractory [Not Recovered/Not Resolved]

NARRATIVE: CASE EVENT DATE: 20191016
